FAERS Safety Report 4880798-9 (Version None)
Quarter: 2006Q1

REPORT INFORMATION
  Report Type: 
  Country: None (occurrence: None)
  Receive Date: 20060111
  Receipt Date: 20040820
  Transmission Date: 20060701
  Serious: Yes (Other)
  Sender: FDA-Public Use
  Company Number: 2004S1000172

PATIENT
  Age: 33 Year
  Weight: 95 kg

DRUGS (6)
  1. CUBICIN [Suspect]
     Indication: CATHETER RELATED COMPLICATION
     Dosage: 6 MG/KG;TIW;IV
     Route: 042
     Dates: start: 20040817, end: 20040801
  2. CUBICIN [Suspect]
     Indication: STAPHYLOCOCCAL BACTERAEMIA
     Dosage: 6 MG/KG;TIW;IV
     Route: 042
     Dates: start: 20040817, end: 20040801
  3. CEFEPIME [Concomitant]
  4. METRONIDAZOLE [Concomitant]
  5. PANTOPRAZOLE [Concomitant]
  6. HEPARIN [Concomitant]

REACTIONS (4)
  - ACTIVATED PARTIAL THROMBOPLASTIN TIME PROLONGED [None]
  - ADRENAL INSUFFICIENCY [None]
  - INTERNATIONAL NORMALISED RATIO INCREASED [None]
  - THROMBOCYTOPENIA [None]
